FAERS Safety Report 22150678 (Version 1)
Quarter: 2023Q1

REPORT INFORMATION
  Report Type: Spontaneous
  Country: US (occurrence: US)
  Receive Date: 20230329
  Receipt Date: 20230329
  Transmission Date: 20230418
  Serious: Yes (Hospitalization)
  Sender: FDA-Public Use
  Company Number: US-JNJFOC-20230368140

PATIENT
  Age: 79 Year
  Sex: Female
  Weight: 77.180 kg

DRUGS (1)
  1. XARELTO [Suspect]
     Active Substance: RIVAROXABAN
     Indication: Product used for unknown indication
     Dosage: EVERY DAY
     Route: 048

REACTIONS (4)
  - Thrombosis [Unknown]
  - Illness [Unknown]
  - Dysphonia [Unknown]
  - Contusion [Unknown]
